FAERS Safety Report 9332774 (Version 1)
Quarter: 2013Q2

REPORT INFORMATION
  Report Type: Spontaneous
  Country: US (occurrence: US)
  Receive Date: 20130606
  Receipt Date: 20130606
  Transmission Date: 20140414
  Serious: No
  Sender: FDA-Public Use
  Company Number: US-PFIZER INC-2013169509

PATIENT
  Age: 55 Year
  Sex: Male

DRUGS (1)
  1. XALKORI [Suspect]
     Indication: LUNG NEOPLASM MALIGNANT
     Dosage: 250 MG, 2X/DAY
     Route: 048
     Dates: start: 20130510

REACTIONS (6)
  - Nausea [Unknown]
  - Vision blurred [Unknown]
  - Acne [Unknown]
  - Photopsia [Unknown]
  - Vitreous floaters [Unknown]
  - Muscle spasms [Recovered/Resolved]
